FAERS Safety Report 4787008-1 (Version None)
Quarter: 2005Q3

REPORT INFORMATION
  Report Type: 
  Country: None (occurrence: None)
  Receive Date: 20050930
  Receipt Date: 20050917
  Transmission Date: 20060218
  Serious: Yes (Hospitalization)
  Sender: FDA-Public Use
  Company Number: GXKR2005US01697

PATIENT
  Age: 39 Year
  Sex: Female

DRUGS (5)
  1. CYCLOBENZAPRINE HCL [Suspect]
  2. DISULFIRAM [Concomitant]
  3. FLUOXETINE [Concomitant]
  4. BUSPIRONE HCL [Concomitant]
  5. FOLATE (FOLATE SODIUM) [Concomitant]

REACTIONS (3)
  - ANTICHOLINERGIC SYNDROME [None]
  - LOSS OF CONSCIOUSNESS [None]
  - OVERDOSE [None]
